FAERS Safety Report 9332614 (Version 1)
Quarter: 2013Q2

REPORT INFORMATION
  Report Type: Spontaneous
  Country: ES (occurrence: ES)
  Receive Date: 20130606
  Receipt Date: 20130606
  Transmission Date: 20140414
  Serious: Yes (Other)
  Sender: FDA-Public Use
  Company Number: ES-MPIJNJ-2013-03931

PATIENT
  Sex: 0

DRUGS (7)
  1. VELCADE [Suspect]
     Indication: PLASMA CELL MYELOMA
     Dosage: 2.51 MG, UNK
     Route: 058
     Dates: start: 20130125
  2. DEXAMETHASONE [Concomitant]
  3. ADIRO [Concomitant]
     Dosage: 300 MG, UNK
  4. OMEPRAZOLE [Concomitant]
     Dosage: 20 MG, UNK
  5. ORFIDAL [Concomitant]
  6. CALCIUM [Concomitant]
  7. VITAMIN D                          /00107901/ [Concomitant]

REACTIONS (2)
  - Injection site ulcer [Recovered/Resolved]
  - Injection site erythema [Recovered/Resolved]
